FAERS Safety Report 15233394 (Version 1)
Quarter: 2018Q3

REPORT INFORMATION
  Report Type: Spontaneous
  Country: CA (occurrence: CA)
  Receive Date: 20180802
  Receipt Date: 20180802
  Transmission Date: 20181010
  Serious: Yes (Death, Hospitalization)
  Sender: FDA-Public Use
  Company Number: CA-TEVA-2018-CA-934973

PATIENT
  Age: 54 Year
  Sex: Female

DRUGS (7)
  1. INSULIN REGULAR [Concomitant]
     Active Substance: INSULIN NOS
  2. INSULIN REGULAR [Concomitant]
     Active Substance: INSULIN NOS
  3. PREDNISONE. [Concomitant]
     Active Substance: PREDNISONE
  4. PROGRAF [Suspect]
     Active Substance: TACROLIMUS\TACROLIMUS ANHYDROUS
     Indication: PROPHYLAXIS AGAINST TRANSPLANT REJECTION
     Route: 042
  5. FUROSEMIDE. [Concomitant]
     Active Substance: FUROSEMIDE
  6. TERAZOSIN [Concomitant]
     Active Substance: TERAZOSIN\TERAZOSIN HYDROCHLORIDE
  7. MYCOPHENOLATE MOFETIL. [Suspect]
     Active Substance: MYCOPHENOLATE MOFETIL
     Indication: PROPHYLAXIS AGAINST TRANSPLANT REJECTION
     Route: 042

REACTIONS (8)
  - Dialysis [Fatal]
  - Drug ineffective [Fatal]
  - Dyspnoea [Fatal]
  - Mechanical ventilation [Fatal]
  - Pneumonia [Fatal]
  - Kidney transplant rejection [Fatal]
  - Haemodynamic instability [Fatal]
  - Gastrointestinal tube insertion [Fatal]
